FAERS Safety Report 7228440-6 (Version None)
Quarter: 2011Q1

REPORT INFORMATION
  Report Type: 
  Country: None (occurrence: None)
  Receive Date: 20110114
  Receipt Date: 20110105
  Transmission Date: 20110831
  Serious: Yes (Hospitalization)
  Sender: FDA-Public Use
  Company Number: US-MERCK-1012USA02874

PATIENT
  Age: 13 Year
  Sex: Male

DRUGS (3)
  1. COZAAR [Suspect]
     Route: 048
  2. ASPIRIN [Suspect]
     Route: 065
  3. DIPHENHYDRAMINE CITRATE AND IBUPROFEN [Suspect]
     Route: 065

REACTIONS (6)
  - TOXICITY TO VARIOUS AGENTS [None]
  - AGITATION [None]
  - INTENTIONAL OVERDOSE [None]
  - HYPOTENSION [None]
  - HYPERHIDROSIS [None]
  - CONFUSIONAL STATE [None]
